APPROVED DRUG PRODUCT: ENDOMETRIN
Active Ingredient: PROGESTERONE
Strength: 100MG
Dosage Form/Route: INSERT;VAGINAL
Application: N022057 | Product #001 | TE Code: AB
Applicant: FERRING PHARMACEUTICALS INC
Approved: Jun 21, 2007 | RLD: Yes | RS: Yes | Type: RX